FAERS Safety Report 22979980 (Version 6)
Quarter: 2023Q4

REPORT INFORMATION
  Report Type: Spontaneous
  Country: US (occurrence: US)
  Receive Date: 20230925
  Receipt Date: 20231109
  Transmission Date: 20240109
  Serious: No
  Sender: FDA-Public Use
  Company Number: US-PFIZER INC-202300293674

PATIENT
  Age: 15 Year
  Sex: Male

DRUGS (2)
  1. GENOTROPIN [Suspect]
     Active Substance: SOMATROPIN
     Indication: Growth hormone deficiency
     Dosage: 2.4 MG, 1X/DAY
  2. GENOTROPIN [Suspect]
     Active Substance: SOMATROPIN
     Dosage: ALTERNATES 2.2MG AND 2.4MG

REACTIONS (8)
  - Poor quality device used [Unknown]
  - Device malfunction [Unknown]
  - Device information output issue [Unknown]
  - Expired device used [Unknown]
  - Device breakage [Unknown]
  - Device physical property issue [Unknown]
  - Wrong technique in device usage process [Unknown]
  - Drug dose omission by device [Unknown]
